FAERS Safety Report 8803291 (Version 3)
Quarter: 2012Q4

REPORT INFORMATION
  Report Type: 
  Country: JP (occurrence: JP)
  Receive Date: 20120924
  Receipt Date: 20121119
  Transmission Date: 20130627
  Serious: No
  Sender: FDA-Public Use
  Company Number: JP-ELI_LILLY_AND_COMPANY-JP201209003220

PATIENT
  Age: 76 Year
  Sex: Female
  Weight: 40 kg

DRUGS (6)
  1. GEMZAR [Suspect]
     Indication: BILE DUCT CANCER STAGE IV
     Dosage: 1000 mg, other
     Route: 042
     Dates: start: 20120406, end: 20120831
  2. ZOMETA [Concomitant]
     Dosage: 3.3 mg, monthly (1/M)
     Route: 042
     Dates: start: 20120330
  3. TAKEPRON [Concomitant]
     Dosage: 15 mg, qd
     Route: 048
     Dates: start: 20120328
  4. MUCOSTA [Concomitant]
     Dosage: 100 mg, tid
     Route: 048
     Dates: start: 20120328
  5. NAIXAN                             /00256201/ [Concomitant]
     Dosage: 100 mg, tid
     Route: 048
     Dates: start: 20120328, end: 20120920
  6. LENDORMIN [Concomitant]
     Dosage: 0.25 mg, UNK
     Route: 048
     Dates: start: 20120429

REACTIONS (2)
  - Haemolytic anaemia [Recovering/Resolving]
  - Neuropathy peripheral [Recovered/Resolved with Sequelae]
